FAERS Safety Report 7873989-6 (Version None)
Quarter: 2011Q4

REPORT INFORMATION
  Report Type: 
  Country: None (occurrence: None)
  Receive Date: 20111017
  Receipt Date: 20110511
  Transmission Date: 20120403
  Serious: Yes (Hospitalization)
  Sender: FDA-Public Use
  Company Number: 2011S1000172

PATIENT
  Age: 76 Year
  Sex: Female

DRUGS (4)
  1. DARVOCET [Suspect]
     Indication: HEADACHE
     Dosage: (1 TOTAL),ORAL
     Route: 048
     Dates: start: 20070209, end: 20070209
  2. GLIPIZIDE [Concomitant]
  3. LYRICA [Suspect]
     Indication: HEADACHE
     Dosage: ORAL
     Route: 048
     Dates: start: 20020101
  4. HYDROCHLOROTHIAZIDE [Suspect]
     Indication: HYPERTENSION
     Dosage: (1 TOTAL),INTRAVENOUS
     Route: 042
     Dates: start: 20070209, end: 20070209

REACTIONS (2)
  - ENCEPHALOPATHY [None]
  - HYPONATRAEMIA [None]
